FAERS Safety Report 15578678 (Version 1)
Quarter: 2018Q4

REPORT INFORMATION
  Report Type: Report from Study
  Country: US (occurrence: US)
  Receive Date: 20181102
  Receipt Date: 20181102
  Transmission Date: 20190205
  Serious: Yes (Other)
  Sender: FDA-Public Use
  Company Number: US-BAYER-2018-201752

PATIENT
  Age: 29 Year
  Sex: Female

DRUGS (1)
  1. ASA [Suspect]
     Active Substance: ASPIRIN

REACTIONS (2)
  - Toxicity to various agents [None]
  - Overdose [None]
